FAERS Safety Report 12827781 (Version 1)
Quarter: 2016Q4

REPORT INFORMATION
  Report Type: Spontaneous
  Country: US (occurrence: US)
  Receive Date: 20161006
  Receipt Date: 20161006
  Transmission Date: 20170207
  Serious: No
  Sender: FDA-Public Use
  Company Number: US-ASTRAZENECA-2016SF03264

PATIENT
  Age: 26813 Day
  Sex: Female
  Weight: 68.9 kg

DRUGS (6)
  1. BYETTA [Suspect]
     Active Substance: EXENATIDE
     Indication: DIABETES MELLITUS
     Route: 065
     Dates: start: 201604
  2. DILSARTAN [Concomitant]
     Indication: RENAL DISORDER
     Dates: start: 201605
  3. RANITIDINE. [Concomitant]
     Active Substance: RANITIDINE
     Indication: GASTROOESOPHAGEAL REFLUX DISEASE
     Dates: start: 201608
  4. METROPROL [Concomitant]
     Indication: STRESS
  5. BYETTA [Suspect]
     Active Substance: EXENATIDE
     Indication: DIABETES MELLITUS
     Dosage: 250 MCG / 2.4 ML PEN
     Route: 065
     Dates: start: 201604
  6. CRESTOR [Suspect]
     Active Substance: ROSUVASTATIN CALCIUM
     Route: 048

REACTIONS (5)
  - Product quality issue [Unknown]
  - Drug dose omission [Unknown]
  - Feeling abnormal [Unknown]
  - Product use issue [Unknown]
  - Appetite disorder [Unknown]

NARRATIVE: CASE EVENT DATE: 20160915
